FAERS Safety Report 23784250 (Version 1)
Quarter: 2024Q2

REPORT INFORMATION
  Report Type: Spontaneous
  Country: US (occurrence: None)
  Receive Date: 20240424
  Receipt Date: 20240424
  Transmission Date: 20240716
  Serious: No
  Sender: FDA-Public Use
  Company Number: None

PATIENT
  Sex: Female

DRUGS (1)
  1. XEOMIN [Suspect]
     Active Substance: INCOBOTULINUMTOXINA
     Indication: Monoplegia
     Dosage: OTHER QUANTITY : 100 UNITS;?OTHER FREQUENCY : EVERY 90 DAYS;?
     Route: 030
     Dates: start: 20230907

REACTIONS (1)
  - Death [None]
